FAERS Safety Report 5060070-7 (Version None)
Quarter: 2006Q3

REPORT INFORMATION
  Report Type: 
  Country: None (occurrence: None)
  Receive Date: 20060719
  Receipt Date: 20060707
  Transmission Date: 20061208
  Serious: Yes (Life-Threatening)
  Sender: FDA-Public Use
  Company Number: 2006US001243

PATIENT
  Age: 64 Year
  Sex: Female

DRUGS (10)
  1. ADENOSCAN [Suspect]
     Indication: SCAN MYOCARDIAL PERFUSION
     Dosage: 30 MG, IV DRIP
     Route: 041
     Dates: start: 20060529, end: 20060529
  2. PIMOBENDAN (PIMOBENDAN) [Concomitant]
  3. CIMETIDINE [Concomitant]
  4. FUROSEMIDE (FUROSEMIDE SODIUM) [Concomitant]
  5. CARVEDILOL [Concomitant]
  6. PERINDOPRIL ERBUMINE [Concomitant]
  7. BENIDIPINE HYDROCHLORIDE (BENIDIPINE HYDROCHLORIDE) [Concomitant]
  8. ASPIRIN [Concomitant]
  9. CILOSTAZOL [Concomitant]
  10. SIMVASTATIN [Concomitant]

REACTIONS (8)
  - ANAPHYLACTIC REACTION [None]
  - BLOOD PRESSURE INCREASED [None]
  - CARDIAC FAILURE ACUTE [None]
  - CYANOSIS [None]
  - ISCHAEMIA [None]
  - LEFT VENTRICULAR FAILURE [None]
  - PULMONARY OEDEMA [None]
  - RESPIRATORY ARREST [None]
